FAERS Safety Report 13940328 (Version 3)
Quarter: 2020Q4

REPORT INFORMATION
  Report Type: Report from Study
  Country: GB (occurrence: GB)
  Receive Date: 20170906
  Receipt Date: 20201026
  Transmission Date: 20210113
  Serious: Yes (Life-Threatening)
  Sender: FDA-Public Use
  Company Number: GB-PFIZER INC-2017375596

PATIENT
  Weight: 32 kg

DRUGS (7)
  1. GEMTUZUMAB OZOGAMICIN [Suspect]
     Active Substance: GEMTUZUMAB OZOGAMICIN
     Dosage: UNK
     Route: 041
  2. CYTARABINE. [Suspect]
     Active Substance: CYTARABINE
     Dosage: 2200 MG, 1X/DAY
     Route: 041
     Dates: start: 201707, end: 20170730
  3. FLUDARABINE [Suspect]
     Active Substance: FLUDARABINE PHOSPHATE
     Dosage: 33 MG, 1X/DAY
     Route: 041
     Dates: start: 201707, end: 20170730
  4. MORPHINE SULPHATE [Concomitant]
     Active Substance: MORPHINE SULFATE
     Indication: PAIN
     Dosage: 20 MG, 1X/DAY
     Dates: start: 20170816, end: 20170827
  5. IDARUBICIN HCL [Suspect]
     Active Substance: IDARUBICIN HYDROCHLORIDE
     Dosage: 8.8 MG, 1X/DAY
     Route: 041
     Dates: start: 201707, end: 20170730
  6. ARTIFICIAL TEARS /00222401/ [Concomitant]
     Active Substance: PROPYLENE GLYCOL
     Indication: DRY EYE
     Dosage: UNK UNK, 4X/DAY
     Dates: start: 20170811, end: 20170820
  7. OMEPRAZOLE. [Concomitant]
     Active Substance: OMEPRAZOLE
     Dosage: 20 MG, 1X/DAY
     Dates: start: 20170815, end: 20170827

REACTIONS (1)
  - Lower gastrointestinal haemorrhage [Not Recovered/Not Resolved]

NARRATIVE: CASE EVENT DATE: 20170818
